FAERS Safety Report 7914919-8 (Version None)
Quarter: 2011Q4

REPORT INFORMATION
  Report Type: 
  Country: None (occurrence: None)
  Receive Date: 20111115
  Receipt Date: 20111113
  Transmission Date: 20120403
  Serious: No
  Sender: FDA-Public Use
  Company Number: US-PFIZER INC-2011277690

PATIENT
  Age: 79 Year
  Sex: Female

DRUGS (3)
  1. IBUPROFEN (ADVIL) [Suspect]
     Indication: PAIN IN EXTREMITY
     Dosage: 2 TABS, UNK
     Route: 048
     Dates: start: 20111111, end: 20111111
  2. VERAPAMIL [Concomitant]
     Indication: HYPERTENSION
     Dosage: 180 MG, DAILY
  3. METOPROLOL [Concomitant]
     Indication: HYPERTENSION
     Dosage: 100 MG, DAILY

REACTIONS (3)
  - DYSPNOEA [None]
  - FEELING HOT [None]
  - PRESYNCOPE [None]
